FAERS Safety Report 20529026 (Version 12)
Quarter: 2023Q2

REPORT INFORMATION
  Report Type: Spontaneous
  Country: US (occurrence: US)
  Receive Date: 20220228
  Receipt Date: 20230530
  Transmission Date: 20230721
  Serious: Yes (Death, Hospitalization, Other)
  Sender: FDA-Public Use
  Company Number: US-PFIZER INC-202101401422

PATIENT
  Age: 71 Year
  Sex: Female
  Weight: 88.9 kg

DRUGS (13)
  1. VYNDAMAX [Suspect]
     Active Substance: TAFAMIDIS
     Indication: Amyloidosis
     Dosage: 61 MG, 1X/DAY
     Route: 048
     Dates: start: 202107
  2. VYNDAMAX [Suspect]
     Active Substance: TAFAMIDIS
     Indication: Cardiac failure
     Dosage: 61MG, RED CAPSULE, ONCE A DAY BY MOUTH
     Route: 048
     Dates: start: 202108
  3. VYNDAMAX [Suspect]
     Active Substance: TAFAMIDIS
     Dosage: 61 MG, 1X/DAY
     Route: 048
  4. BUMEX [Concomitant]
     Active Substance: BUMETANIDE
     Indication: Hypotension
     Dosage: 2 MG
  5. MAGNESIUM OXIDE [Concomitant]
     Active Substance: MAGNESIUM OXIDE
     Indication: Hypotension
     Dosage: 400 MG, 1X/DAY
  6. SPIRONOLACTONE [Concomitant]
     Active Substance: SPIRONOLACTONE
     Dosage: 25 MG, 1X/DAY
  7. MIDODRINE HYDROCHLORIDE [Concomitant]
     Active Substance: MIDODRINE HYDROCHLORIDE
     Indication: Hypotension
     Dosage: WITH WATER
     Route: 048
     Dates: start: 202106
  8. LECITHIN [Concomitant]
     Active Substance: LECITHIN
     Dosage: 1200 MG, (EACH PILLS THREE OF THOSE)
  9. VITAMIN E [Concomitant]
     Active Substance: .ALPHA.-TOCOPHEROL
     Dosage: THREE OF THOSE ONCE A DAY
  10. FISH OIL [Concomitant]
     Active Substance: FISH OIL
     Dosage: 2 DF, 1X/DAY
  11. NIACIN [Concomitant]
     Active Substance: NIACIN
     Indication: Blood cholesterol abnormal
     Dosage: 1000, 1X/DAY
  12. FOLIC ACID [Concomitant]
     Active Substance: FOLIC ACID
     Dosage: 1 MG
  13. VITAMIN C [Concomitant]
     Active Substance: ASCORBIC ACID
     Dosage: 1000 MG, 1X/DAY

REACTIONS (19)
  - Death [Fatal]
  - Coronary artery thrombosis [Recovering/Resolving]
  - Atrial fibrillation [Recovering/Resolving]
  - Anaemia [Unknown]
  - Haemorrhage [Unknown]
  - Haematemesis [Unknown]
  - Loss of control of legs [Unknown]
  - Drug ineffective [Unknown]
  - Product dose omission issue [Unknown]
  - Skin burning sensation [Unknown]
  - Varicella [Unknown]
  - Acarodermatitis [Unknown]
  - Weight decreased [Unknown]
  - Cough [Unknown]
  - Haemoglobin increased [Unknown]
  - Dysstasia [Unknown]
  - Illness [Unknown]
  - Asthenia [Unknown]
  - Condition aggravated [Unknown]

NARRATIVE: CASE EVENT DATE: 20220101
